FAERS Safety Report 21131605 (Version 1)
Quarter: 2022Q3

REPORT INFORMATION
  Report Type: Report from Study
  Country: US (occurrence: US)
  Receive Date: 20220726
  Receipt Date: 20220726
  Transmission Date: 20221027
  Serious: Yes (Other)
  Sender: FDA-Public Use
  Company Number: US-BRISTOL-MYERS SQUIBB COMPANY-2022-016465

PATIENT
  Age: 59 Year
  Sex: Female
  Weight: 67.58 kg

DRUGS (3)
  1. REVLIMID [Suspect]
     Active Substance: LENALIDOMIDE
     Indication: Plasma cell myeloma
     Dosage: 10 MG, 21 DAYS ON, 7 DAYS OFF
     Route: 048
     Dates: start: 201804
  2. REVLIMID [Suspect]
     Active Substance: LENALIDOMIDE
     Indication: Plasma cell myeloma in remission
     Dosage: 10 MILLIGRAM
     Route: 048
     Dates: start: 20190911
  3. REVLIMID [Suspect]
     Active Substance: LENALIDOMIDE
     Indication: Osteoarthritis

REACTIONS (1)
  - Tooth disorder [Unknown]
